FAERS Safety Report 9093198 (Version 2)
Quarter: 2016Q1

REPORT INFORMATION
  Report Type: Report from Study
  Country: US (occurrence: US)
  Receive Date: 20130201
  Receipt Date: 20160113
  Transmission Date: 20160526
  Serious: Yes (Hospitalization, Other)
  Sender: FDA-Public Use
  Company Number: US-ROCHE-1183038

PATIENT
  Sex: Female

DRUGS (1)
  1. LUCENTIS [Suspect]
     Active Substance: RANIBIZUMAB
     Indication: NEOVASCULAR AGE-RELATED MACULAR DEGENERATION
     Dosage: LEFT EYE
     Route: 050

REACTIONS (13)
  - Hypertension [Unknown]
  - Blood test abnormal [Unknown]
  - Influenza [Unknown]
  - Malaise [Not Recovered/Not Resolved]
  - Knee operation [Unknown]
  - Asthenia [Unknown]
  - Diarrhoea [Unknown]
  - Dizziness [Unknown]
  - Fungal infection [Not Recovered/Not Resolved]
  - Gastric perforation [Unknown]
  - Visual impairment [Unknown]
  - Cystitis [Unknown]
  - Nasopharyngitis [Unknown]
